FAERS Safety Report 5981338-3 (Version None)
Quarter: 2008Q4

REPORT INFORMATION
  Report Type: 
  Country: None (occurrence: None)
  Receive Date: 20081205
  Receipt Date: 20081201
  Transmission Date: 20090506
  Serious: Yes (Hospitalization)
  Sender: FDA-Public Use
  Company Number: CG-MERCK-0812USA00475

PATIENT
  Age: 15 Year
  Sex: Female

DRUGS (1)
  1. STROMECTOL [Suspect]
     Indication: ONCHOCERCIASIS
     Route: 048
     Dates: start: 20081007

REACTIONS (6)
  - ABNORMAL BEHAVIOUR [None]
  - CONJUNCTIVAL HAEMORRHAGE [None]
  - DIARRHOEA [None]
  - HEADACHE [None]
  - PRURITUS [None]
  - SPEECH DISORDER [None]
